FAERS Safety Report 4280025-X (Version None)
Quarter: 2004Q1

REPORT INFORMATION
  Report Type: 
  Country: None (occurrence: None)
  Receive Date: 20040126
  Receipt Date: 20040113
  Transmission Date: 20041129
  Serious: Yes (Hospitalization, Other)
  Sender: FDA-Public Use
  Company Number: 2004002691

PATIENT
  Age: 59 Year
  Sex: Female

DRUGS (11)
  1. FELDENE [Suspect]
     Indication: SCIATICA
     Dosage: INTRAMUSCULAR
     Route: 030
     Dates: start: 20031112
  2. PARACETAMOL (PARACETAMOL) [Suspect]
     Indication: SCIATICA
     Dosage: 2 GRAM (DAILY), ORAL
     Route: 048
     Dates: start: 20031101, end: 20031120
  3. LAMALINE (CAFFEINE, PARACETAMOL, BELLADONNA EXTRACT, OPIUM TINCTURE) [Suspect]
     Indication: SCIATICA
     Dosage: (QID), ORAL
     Route: 048
     Dates: start: 20031101, end: 20031120
  4. ETHANOL (ETHANOL) [Suspect]
     Indication: ILL-DEFINED DISORDER
  5. DICLIOFENAC (DICLOFENAC) [Concomitant]
  6. CLONAZEPAM [Concomitant]
  7. THIOCOLCHLICOSIDE (THIOCOLCHLICOSIDE) [Concomitant]
  8. NOCTRAN 10 (ACEPROMAZINE, ACEPROMETAZIEN, CLORAZEPATE DIPOTASSIUM) [Concomitant]
  9. TETRAZEPAM (TETRAZEPAM) [Concomitant]
  10. KARVEA HCT (HYDROCHLOROTHIAZIDE, IRBESARTAN) [Concomitant]
  11. PRAZEPAM [Concomitant]

REACTIONS (10)
  - ALCOHOL POISONING [None]
  - ANTINUCLEAR ANTIBODY POSITIVE [None]
  - ARTHRALGIA [None]
  - ASTERIXIS [None]
  - CYTOLYTIC HEPATITIS [None]
  - HEPATIC CIRRHOSIS [None]
  - HEPATOMEGALY [None]
  - HEPATOTOXICITY [None]
  - RENAL FAILURE [None]
  - SELF-MEDICATION [None]
